FAERS Safety Report 22127713 (Version 2)
Quarter: 2023Q1

REPORT INFORMATION
  Report Type: Spontaneous
  Country: CA (occurrence: CA)
  Receive Date: 20230323
  Receipt Date: 20230330
  Transmission Date: 20230417
  Serious: Yes (Life-Threatening, Hospitalization, Other)
  Sender: FDA-Public Use
  Company Number: None

PATIENT
  Age: 61 Year
  Sex: Female

DRUGS (2)
  1. MYCOPHENOLATE MOFETIL [Suspect]
     Active Substance: MYCOPHENOLATE MOFETIL
     Indication: Immunosuppressant drug therapy
     Dosage: 750 MILLIGRAM, BID (TWICE DAILY)
     Route: 065
  2. TACROLIMUS [Suspect]
     Active Substance: TACROLIMUS
     Indication: Immunosuppressant drug therapy
     Dosage: 1 MILLIGRAM, QD (DAILY)
     Route: 065

REACTIONS (6)
  - Encephalomalacia [Unknown]
  - Cerebral toxoplasmosis [Recovered/Resolved]
  - Cerebral nocardiosis [Recovered/Resolved]
  - Brain abscess [Recovered/Resolved]
  - Acute kidney injury [Unknown]
  - Leukopenia [Unknown]
